FAERS Safety Report 6166279-3 (Version None)
Quarter: 2009Q2

REPORT INFORMATION
  Report Type: 
  Country: None (occurrence: None)
  Receive Date: 20090424
  Receipt Date: 20090422
  Transmission Date: 20091009
  Serious: Yes (Other)
  Sender: FDA-Public Use
  Company Number: GB-BRISTOL-MYERS SQUIBB COMPANY-14596605

PATIENT
  Sex: Female
  Weight: 4 kg

DRUGS (2)
  1. NYSTATIN [Suspect]
     Indication: ORAL CANDIDIASIS
     Route: 048
     Dates: start: 20090415, end: 20090416
  2. SALINE [Concomitant]
     Route: 045

REACTIONS (5)
  - DEPRESSED LEVEL OF CONSCIOUSNESS [None]
  - HYPOTONIA [None]
  - LOSS OF CONSCIOUSNESS [None]
  - PALLOR [None]
  - RASH MACULO-PAPULAR [None]
